FAERS Safety Report 13636453 (Version 2)
Quarter: 2017Q3

REPORT INFORMATION
  Report Type: Spontaneous
  Country: US (occurrence: US)
  Receive Date: 20170609
  Receipt Date: 20170822
  Transmission Date: 20171127
  Serious: No
  Sender: FDA-Public Use
  Company Number: US-009507513-1706USA000374

PATIENT
  Age: 27 Year
  Sex: Female
  Weight: 76.64 kg

DRUGS (2)
  1. PNV [Concomitant]
     Dosage: UNK, QD, DIVIDED DOSE
     Route: 048
     Dates: start: 20170606
  2. NEXPLANON [Suspect]
     Active Substance: ETONOGESTREL
     Indication: CONTRACEPTION
     Dosage: 1 IMPLANT, Q3YEARS
     Route: 059
     Dates: start: 20170206, end: 20170601

REACTIONS (1)
  - Exposure during pregnancy [Unknown]

NARRATIVE: CASE EVENT DATE: 20170206
